FAERS Safety Report 11186838 (Version 1)
Quarter: 2015Q2

REPORT INFORMATION
  Report Type: Spontaneous
  Country: CA (occurrence: CA)
  Receive Date: 20150614
  Receipt Date: 20150614
  Transmission Date: 20150821
  Serious: Yes (Hospitalization)
  Sender: FDA-Public Use
  Company Number: CA-TEVA-570344ACC

PATIENT
  Age: 57 Year
  Sex: Female
  Weight: 58 kg

DRUGS (5)
  1. OMEPRAZOLE. [Concomitant]
     Active Substance: OMEPRAZOLE
     Dosage: UNKNOWN FORM STRENGTH
     Route: 065
  2. QUETIAPINE [Suspect]
     Active Substance: QUETIAPINE
     Indication: MENTAL DISORDER
     Route: 048
  3. RISPERIDONE. [Suspect]
     Active Substance: RISPERIDONE
     Indication: MENTAL DISORDER
     Dosage: 1 MILLIGRAM DAILY;
     Route: 048
  4. ASA [Concomitant]
     Active Substance: ASPIRIN
     Dosage: UNKNOWN FORM STRENGTH
     Route: 065
  5. DIDROCAL [Concomitant]
     Active Substance: CALCIUM CARBONATE\ETIDRONATE DISODIUM
     Dosage: KIT; UNKNOWN FORM STRENGTH
     Route: 065

REACTIONS (3)
  - Serotonin syndrome [Recovered/Resolved]
  - Hypophagia [Recovered/Resolved]
  - Weight decreased [Recovered/Resolved]
